FAERS Safety Report 4731766-9 (Version None)
Quarter: 2005Q3

REPORT INFORMATION
  Report Type: 
  Country: None (occurrence: None)
  Receive Date: 20050725
  Receipt Date: 20040701
  Transmission Date: 20060218
  Serious: Yes (Life-Threatening, Hospitalization, Other)
  Sender: FDA-Public Use
  Company Number: WAES 0407USA00218

PATIENT
  Age: 58 Year
  Sex: Female

DRUGS (3)
  1. VIOXX [Suspect]
     Indication: MENISCUS LESION
     Dosage: 25 MG/DAILY/PO
     Route: 048
     Dates: start: 20040428, end: 20040609
  2. VIOXX [Suspect]
     Indication: PAIN
     Dosage: 25 MG/DAILY/PO
     Route: 048
     Dates: start: 20040428, end: 20040609
  3. ASPIRIN [Concomitant]

REACTIONS (2)
  - DUODENAL ULCER HAEMORRHAGE [None]
  - DUODENAL ULCER PERFORATION [None]
